FAERS Safety Report 12378656 (Version 1)
Quarter: 2016Q2

REPORT INFORMATION
  Report Type: Spontaneous
  Country: US (occurrence: US)
  Receive Date: 20160517
  Receipt Date: 20160517
  Transmission Date: 20160815
  Serious: Yes (Other)
  Sender: FDA-Public Use
  Company Number: US-ASTRAZENECA-2016SE50792

PATIENT
  Age: 690 Month
  Sex: Female
  Weight: 54.4 kg

DRUGS (6)
  1. VITAMIN D3 [Concomitant]
     Active Substance: CHOLECALCIFEROL
     Indication: OSTEOPOROSIS
     Route: 048
     Dates: start: 2011
  2. CALCIUM WITH MAGNESIUM AND ZINC [Concomitant]
     Indication: OSTEOPOROSIS
     Route: 048
     Dates: start: 2013
  3. ARIMIDEX [Suspect]
     Active Substance: ANASTROZOLE
     Indication: BREAST CANCER FEMALE
     Route: 048
     Dates: start: 20131001
  4. VITAMIN D3 [Concomitant]
     Active Substance: CHOLECALCIFEROL
     Indication: OSTEOPENIA
     Route: 048
     Dates: start: 2011
  5. CALCIUM WITH MAGNESIUM AND ZINC [Concomitant]
     Indication: OSTEOPENIA
     Route: 048
     Dates: start: 2013
  6. BABY ASPIRIN [Concomitant]
     Active Substance: ASPIRIN
     Indication: RECURRENT CANCER
     Route: 048
     Dates: start: 201601

REACTIONS (2)
  - Metastasis [Unknown]
  - Osteoporosis [Unknown]

NARRATIVE: CASE EVENT DATE: 201410
